FAERS Safety Report 19916680 (Version 2)
Quarter: 2022Q4

REPORT INFORMATION
  Report Type: Spontaneous
  Country: US (occurrence: US)
  Receive Date: 20211005
  Receipt Date: 20221018
  Transmission Date: 20230112
  Serious: No
  Sender: FDA-Public Use
  Company Number: US-CELLTRION INC.-2021US006108

PATIENT

DRUGS (2)
  1. INFLECTRA [Suspect]
     Active Substance: INFLIXIMAB-DYYB
     Indication: Crohn^s disease
     Dosage: 666 MG, EVERY 6 WEEKS
     Route: 065
     Dates: start: 20200909
  2. INFLECTRA [Suspect]
     Active Substance: INFLIXIMAB-DYYB
     Dosage: UNK, CYCLIC 100 MG/20 ML (7.5 EVERY 6 WEEKS)
     Route: 065

REACTIONS (6)
  - Product distribution issue [Recovered/Resolved]
  - Product selection error [Unknown]
  - Therapy interrupted [Recovered/Resolved]
  - Treatment delayed [Unknown]
  - Overdose [Unknown]
  - Off label use [Unknown]

NARRATIVE: CASE EVENT DATE: 20210426
